FAERS Safety Report 20801311 (Version 1)
Quarter: 2022Q2

REPORT INFORMATION
  Report Type: Spontaneous
  Country: US (occurrence: None)
  Receive Date: 20220507
  Receipt Date: 20220507
  Transmission Date: 20220720
  Serious: No
  Sender: FDA-Public Use
  Company Number: None

PATIENT
  Age: 64 Year
  Sex: Male
  Weight: 90 kg

DRUGS (11)
  1. PAXLOVID [Suspect]
     Active Substance: NIRMATRELVIR\RITONAVIR
     Indication: SARS-CoV-2 test positive
     Dosage: FREQUENCY : TWICE A DAY;?
     Route: 048
     Dates: start: 20220503, end: 20220507
  2. Atorvastation [Concomitant]
  3. TRULICITY [Concomitant]
     Active Substance: DULAGLUTIDE
  4. METFORMIN [Concomitant]
     Active Substance: METFORMIN HYDROCHLORIDE
  5. ASPIRIN [Concomitant]
     Active Substance: ASPIRIN
  6. HYDROCHLOROTHIAZIDE\LOSARTAN [Concomitant]
     Active Substance: HYDROCHLOROTHIAZIDE\LOSARTAN
  7. JARDIANCE [Concomitant]
     Active Substance: EMPAGLIFLOZIN
  8. CIALIS [Concomitant]
     Active Substance: TADALAFIL
  9. TAMSULOSIN [Concomitant]
     Active Substance: TAMSULOSIN
  10. DESCOVY [Concomitant]
     Active Substance: EMTRICITABINE\TENOFOVIR ALAFENAMIDE FUMARATE
  11. VITAMIN D NOS [Concomitant]
     Active Substance: VITAMIN D NOS

REACTIONS (1)
  - Dysgeusia [None]

NARRATIVE: CASE EVENT DATE: 20220503
